FAERS Safety Report 4539945-0 (Version None)
Quarter: 2004Q4

REPORT INFORMATION
  Report Type: 
  Country: None (occurrence: None)
  Receive Date: 20041223
  Receipt Date: 20041215
  Transmission Date: 20050328
  Serious: Yes (Hospitalization, Other)
  Sender: FDA-Public Use
  Company Number: 2004114433

PATIENT
  Sex: Male

DRUGS (7)
  1. NEURONTIN [Suspect]
     Indication: BACK PAIN
     Dosage: 900 MG (300 MG, 3 IN 1 D), ORAL
     Route: 048
     Dates: start: 20030101
  2. NEURONTIN [Suspect]
     Indication: DEPRESSION
     Dosage: 900 MG (300 MG, 3 IN 1 D), ORAL
     Route: 048
     Dates: start: 20030101
  3. LAMOTRIGINE [Concomitant]
  4. BENZTROPINE MESYLATE [Concomitant]
  5. VENLAFAXINE HCL [Concomitant]
  6. CLONAZEPAM [Concomitant]
  7. RISPERDAL [Concomitant]

REACTIONS (2)
  - LACERATION [None]
  - SELF INJURIOUS BEHAVIOUR [None]
